FAERS Safety Report 20910597 (Version 1)
Quarter: 2022Q2

REPORT INFORMATION
  Report Type: Spontaneous
  Country: US (occurrence: None)
  Receive Date: 20220602
  Receipt Date: 20220602
  Transmission Date: 20220720
  Serious: No
  Sender: FDA-Public Use
  Company Number: None

PATIENT
  Sex: Female

DRUGS (1)
  1. OTEZLA [Suspect]
     Active Substance: APREMILAST
     Indication: Psoriasis
     Dosage: 80 MG 2 TIMES DAILY BY MOUTH?
     Route: 048
     Dates: start: 202203, end: 202205

REACTIONS (9)
  - Drug intolerance [None]
  - Nausea [None]
  - Vomiting [None]
  - Diarrhoea [None]
  - Weight decreased [None]
  - Decreased appetite [None]
  - Iron deficiency anaemia [None]
  - Condition aggravated [None]
  - Therapy cessation [None]
